FAERS Safety Report 13439403 (Version 1)
Quarter: 2017Q2

REPORT INFORMATION
  Report Type: Report from Study
  Country: None (occurrence: AR)
  Receive Date: 20170412
  Receipt Date: 20170412
  Transmission Date: 20170830
  Serious: Yes (Hospitalization, Other)
  Sender: FDA-Public Use
  Company Number: AR-ABBVIE-17K-007-1941067-00

PATIENT
  Age: 86 Year
  Sex: Male

DRUGS (1)
  1. HUMIRA [Suspect]
     Active Substance: ADALIMUMAB
     Indication: RHEUMATOID ARTHRITIS
     Route: 058
     Dates: start: 20131010

REACTIONS (3)
  - Dehydration [Recovered/Resolved]
  - Cyst [Recovering/Resolving]
  - Hypertension [Recovered/Resolved]

NARRATIVE: CASE EVENT DATE: 201703
